FAERS Safety Report 8490659-4 (Version None)
Quarter: 2012Q3

REPORT INFORMATION
  Report Type: 
  Country: None (occurrence: None)
  Receive Date: 20120705
  Receipt Date: 20120627
  Transmission Date: 20120928
  Serious: Yes (Death)
  Sender: FDA-Public Use
  Company Number: US-CELGENEUS-163-21880-12061863

PATIENT
  Sex: Male

DRUGS (7)
  1. REVLIMID [Suspect]
     Dosage: 10 MILLIGRAM
     Route: 048
     Dates: start: 20120327, end: 20120413
  2. ADVAIR DISKUS 100/50 [Concomitant]
     Route: 055
  3. SULFAMETHOXAZOLE AND TRIMETHOPRIM DOUBLE STRENGTH [Concomitant]
     Route: 048
     Dates: start: 20110824
  4. EPOETIN ALFA [Concomitant]
     Route: 065
     Dates: start: 20110608
  5. COMPAZINE [Concomitant]
     Route: 048
     Dates: start: 20110329
  6. OMEPRAZOLE [Concomitant]
     Route: 048
  7. ALLOPURINOL [Concomitant]
     Route: 048
     Dates: start: 20110329

REACTIONS (1)
  - CHRONIC LYMPHOCYTIC LEUKAEMIA [None]
